FAERS Safety Report 8407076-5 (Version None)
Quarter: 2012Q2

REPORT INFORMATION
  Report Type: 
  Country: None (occurrence: None)
  Receive Date: 20120604
  Receipt Date: 20120531
  Transmission Date: 20120825
  Serious: Yes (Life-Threatening, Hospitalization, Other)
  Sender: FDA-Public Use
  Company Number: CO-PFIZER INC-2012073427

PATIENT
  Age: 71 Year
  Sex: Male

DRUGS (10)
  1. ATORVASTATIN CALCIUM [Suspect]
     Indication: HYPERLIPIDAEMIA
     Dosage: 40 MG, 1X/DAY
     Dates: end: 20120304
  2. LEVOTHYROXINE [Concomitant]
     Dosage: 50 MG, UNK
  3. VANCOMYCIN [Concomitant]
     Dosage: 500 MG, 2X/DAY
     Dates: end: 20120304
  4. BISACODYL [Concomitant]
     Dosage: 5 MG, 1X/DAY
  5. HEPARIN [Concomitant]
     Dosage: 60 MG /0.6 ML, UNSPECIFIED FREQUENCY
  6. OMEPRAZOLE [Concomitant]
     Dosage: 20 MG CAPSULE
  7. METOPROLOL [Concomitant]
     Indication: HYPERTENSION
     Dosage: 100 MG, 1X/DAY
  8. PHENYTOIN [Suspect]
     Indication: CONVULSION
     Dosage: 300 MG, 1X/DAY
     Route: 048
     Dates: start: 20120222, end: 20120306
  9. CARBIDOPA + LEVODOPA [Concomitant]
     Dosage: 250/25MG, UNKNOWN FREQUENCY
  10. ENALAPRIL [Concomitant]
     Dosage: 20 MG, UNK

REACTIONS (3)
  - RENAL FAILURE ACUTE [None]
  - RASH [None]
  - RHABDOMYOLYSIS [None]
